FAERS Safety Report 18091832 (Version 1)
Quarter: 2020Q3

REPORT INFORMATION
  Report Type: Spontaneous
  Country: US (occurrence: US)
  Receive Date: 20200729
  Receipt Date: 20200729
  Transmission Date: 20201103
  Serious: No
  Sender: FDA-Public Use
  Company Number: None

PATIENT
  Age: 74 Year
  Sex: Female

DRUGS (2)
  1. OMEPRAZOLE. [Suspect]
     Active Substance: OMEPRAZOLE
     Route: 048
     Dates: start: 20180601
  2. LORATATINE 10 MG [Concomitant]
     Dates: start: 20200610

REACTIONS (2)
  - Product odour abnormal [None]
  - Urine odour abnormal [None]

NARRATIVE: CASE EVENT DATE: 20200713
